FAERS Safety Report 21456289 (Version 1)
Quarter: 2022Q4

REPORT INFORMATION
  Report Type: Spontaneous
  Country: DE (occurrence: DE)
  Receive Date: 20221014
  Receipt Date: 20221014
  Transmission Date: 20230112
  Serious: Yes (Other)
  Sender: FDA-Public Use
  Company Number: None

PATIENT
  Sex: Female
  Weight: 58 kg

DRUGS (5)
  1. NAFARELIN ACETATE [Suspect]
     Active Substance: NAFARELIN ACETATE
     Dosage: FREQ:12 H; 1-0-1
     Route: 045
     Dates: start: 20220831, end: 20220919
  2. CHORIOGONADOTROPIN ALFA [Suspect]
     Active Substance: CHORIOGONADOTROPIN ALFA
     Dosage: UNK
     Route: 058
     Dates: start: 20220919
  3. IBUPROFEN [Suspect]
     Active Substance: IBUPROFEN
     Dosage: CATHETER LYING OVER ONE HOUR WITH ADMINISTRATION 600MG IBUPROFEN I.V. ABOVE
     Route: 042
     Dates: start: 20220921
  4. FOLLITROPIN\LUTROPIN ALFA [Suspect]
     Active Substance: FOLLITROPIN\LUTROPIN ALFA
     Dosage: 200IE; 1-0-0
     Route: 058
     Dates: start: 20220910, end: 20220919
  5. DUPHASTON [Suspect]
     Active Substance: DYDROGESTERONE
     Dosage: FREQ:8 H; 1-1-1
     Route: 048
     Dates: start: 20220922

REACTIONS (3)
  - Venous thrombosis [Not Recovered/Not Resolved]
  - Peripheral swelling [Not Recovered/Not Resolved]
  - Pain in extremity [Not Recovered/Not Resolved]

NARRATIVE: CASE EVENT DATE: 20220924
